FAERS Safety Report 6190835-X (Version None)
Quarter: 2009Q2

REPORT INFORMATION
  Report Type: 
  Country: None (occurrence: None)
  Receive Date: 20090514
  Receipt Date: 20090511
  Transmission Date: 20091009
  Serious: Yes (Death, Life-Threatening, Hospitalization, Other)
  Sender: FDA-Public Use
  Company Number: PHHY2009FR18245

PATIENT
  Sex: Male

DRUGS (7)
  1. STALEVO 100 [Suspect]
     Indication: PARKINSON'S DISEASE
     Dosage: UNK
  2. SINEMET [Suspect]
     Indication: PARKINSON'S DISEASE
     Dosage: 10010 MG, BID
  3. PREVISCAN [Suspect]
     Dosage: 10 MG, DAILY
  4. SOTALOL HYDROCHLORIDE [Suspect]
     Dosage: 40 MG, DAILY
  5. STABLON [Suspect]
     Dosage: 12.5 MG, DAILY
  6. LERCAN [Suspect]
     Dosage: 10 MG, DAILY
  7. LASIX [Suspect]
     Dosage: UNK

REACTIONS (15)
  - APHASIA [None]
  - BRONCHIAL OBSTRUCTION [None]
  - CEREBELLAR HAEMATOMA [None]
  - CEREBRAL ISCHAEMIA [None]
  - CEREBROVASCULAR ACCIDENT [None]
  - CONDITION AGGRAVATED [None]
  - CONFUSIONAL STATE [None]
  - DISORIENTATION [None]
  - FALL [None]
  - HEMIANOPIA HOMONYMOUS [None]
  - HEMIPARESIS [None]
  - LUNG DISORDER [None]
  - MOVEMENT DISORDER [None]
  - MUSCLE RIGIDITY [None]
  - NEUROLOGICAL DECOMPENSATION [None]
